FAERS Safety Report 5094602-X (Version None)
Quarter: 2006Q3

REPORT INFORMATION
  Report Type: 
  Country: None (occurrence: None)
  Receive Date: 20060830
  Receipt Date: 20060815
  Transmission Date: 20061208
  Serious: Yes (Hospitalization)
  Sender: FDA-Public Use
  Company Number: US200608001430

PATIENT
  Age: 48 Year
  Sex: Male
  Weight: 107 kg

DRUGS (1)
  1. ZYPREXA [Suspect]
     Indication: BIPOLAR DISORDER
     Dosage: 20 MG, ORAL
     Route: 048
     Dates: start: 19960101

REACTIONS (6)
  - DIABETES MELLITUS [None]
  - INSULIN RESISTANCE [None]
  - METABOLIC DISORDER [None]
  - MYOCARDIAL INFARCTION [None]
  - MYOCARDIAL ISCHAEMIA [None]
  - VISION BLURRED [None]
